FAERS Safety Report 23301225 (Version 3)
Quarter: 2024Q1

REPORT INFORMATION
  Report Type: Spontaneous
  Country: JP (occurrence: JP)
  Receive Date: 20231215
  Receipt Date: 20240111
  Transmission Date: 20240410
  Serious: Yes (Hospitalization, Disabling, Congenital Anomaly, Other)
  Sender: FDA-Public Use
  Company Number: JP-UCBSA-2023058719

PATIENT
  Age: 29 Day
  Sex: Male
  Weight: 1.862 kg

DRUGS (4)
  1. LEVETIRACETAM [Suspect]
     Active Substance: LEVETIRACETAM
     Indication: Infantile apnoea
     Dosage: UNK
     Route: 048
  2. PHENOBARBITAL [Concomitant]
     Active Substance: PHENOBARBITAL
     Indication: Neonatal seizure
     Dosage: UNK
     Route: 048
  3. VALPROATE SODIUM [Concomitant]
     Active Substance: VALPROATE SODIUM
     Indication: Infantile apnoea
     Dosage: UNK
  4. TOPIRAMATE [Concomitant]
     Active Substance: TOPIRAMATE
     Indication: Infantile apnoea
     Dosage: UNK

REACTIONS (5)
  - Infantile apnoea [Recovered/Resolved with Sequelae]
  - Schizencephaly [Recovered/Resolved with Sequelae]
  - Psychomotor skills impaired [Recovered/Resolved with Sequelae]
  - Bedridden [Recovered/Resolved with Sequelae]
  - Off label use [Unknown]
